FAERS Safety Report 12233245 (Version 13)
Quarter: 2022Q2

REPORT INFORMATION
  Report Type: Report from Study
  Country: JP (occurrence: JP)
  Receive Date: 20160404
  Receipt Date: 20220622
  Transmission Date: 20220721
  Serious: Yes (Hospitalization, Other)
  Sender: FDA-Public Use
  Company Number: JP-BRISTOL-MYERS SQUIBB COMPANY-BMS-2016-024683

PATIENT
  Age: 80 Year
  Sex: Male
  Weight: 52 kg

DRUGS (3)
  1. NIVOLUMAB [Suspect]
     Active Substance: NIVOLUMAB
     Indication: Non-small cell lung cancer recurrent
     Dosage: 3 MG/KG, QD
     Route: 041
     Dates: start: 20160212, end: 20160923
  2. NIVOLUMAB [Suspect]
     Active Substance: NIVOLUMAB
     Dosage: 3 MG/KG, QD
     Route: 041
     Dates: start: 20161007
  3. NIVOLUMAB [Suspect]
     Active Substance: NIVOLUMAB
     Route: 041
     Dates: start: 20160212

REACTIONS (4)
  - Oculomucocutaneous syndrome [Recovered/Resolved]
  - Arthritis [Unknown]
  - Adrenal insufficiency [Recovered/Resolved]
  - Stomatitis [Unknown]

NARRATIVE: CASE EVENT DATE: 20160305
